FAERS Safety Report 11460674 (Version 1)
Quarter: 2015Q3

REPORT INFORMATION
  Report Type: Spontaneous
  Country: US (occurrence: US)
  Receive Date: 20150904
  Receipt Date: 20150904
  Transmission Date: 20151125
  Serious: Yes (Other)
  Sender: FDA-Public Use
  Company Number: US-TAKEDA-2014TUS008263

PATIENT

DRUGS (16)
  1. ACTOS [Suspect]
     Active Substance: PIOGLITAZONE HYDROCHLORIDE
     Dosage: 30 MG/ 30 DAYS, UNK
     Route: 048
     Dates: start: 20101205
  2. DIABETA                            /00145301/ [Concomitant]
     Dosage: COMBINED IN ONE TABLET OF 5-500 MG
  3. ACTOS [Suspect]
     Active Substance: PIOGLITAZONE HYDROCHLORIDE
     Dosage: 30 MG/ 30 DAYS, UNK
     Route: 048
     Dates: start: 20081201
  4. ACTOS [Suspect]
     Active Substance: PIOGLITAZONE HYDROCHLORIDE
     Dosage: 30MG / 30 DAYS, UNK
     Route: 048
     Dates: start: 20090309
  5. ACTOS [Suspect]
     Active Substance: PIOGLITAZONE HYDROCHLORIDE
     Dosage: 30 MG/ 30 DAYS, UNK
     Dates: start: 20090516
  6. ACTOS [Suspect]
     Active Substance: PIOGLITAZONE HYDROCHLORIDE
     Dosage: 30 MG/ 30 DAYS, UNK
     Dates: start: 20091214
  7. ACTOS [Suspect]
     Active Substance: PIOGLITAZONE HYDROCHLORIDE
     Dosage: 30 MG/ 30 DAYS , UNK
     Route: 048
     Dates: start: 20081108
  8. METFORMIN [Concomitant]
     Active Substance: METFORMIN HYDROCHLORIDE
     Dosage: COMBINED IN ONE TABLET OF 5-500 MG
  9. ACTOS [Suspect]
     Active Substance: PIOGLITAZONE HYDROCHLORIDE
     Dosage: 30 MG / 30 DAYS, UNK
     Route: 048
     Dates: start: 20080609
  10. ACTOS [Suspect]
     Active Substance: PIOGLITAZONE HYDROCHLORIDE
     Dosage: 30 MG/ 30 DAYS, UNK
     Route: 048
     Dates: start: 20081124
  11. ACTOS [Suspect]
     Active Substance: PIOGLITAZONE HYDROCHLORIDE
     Indication: TYPE 2 DIABETES MELLITUS
     Dosage: 30 MG/ 30 DAYS UNK
     Route: 048
     Dates: start: 20070711
  12. ACTOS [Suspect]
     Active Substance: PIOGLITAZONE HYDROCHLORIDE
     Dosage: 30 MG/ 30 DAYS, UNK
     Route: 048
     Dates: start: 20110228
  13. ACTOS [Suspect]
     Active Substance: PIOGLITAZONE HYDROCHLORIDE
     Dosage: 30 MG/ 30 DAYS, UNK
     Route: 048
     Dates: start: 20071005
  14. ACTOS [Suspect]
     Active Substance: PIOGLITAZONE HYDROCHLORIDE
     Dosage: 30 MG / 30 DAYS UNK
     Route: 048
     Dates: start: 20070805
  15. ACTOS [Suspect]
     Active Substance: PIOGLITAZONE HYDROCHLORIDE
     Dosage: 30MG/ 30 DAYS, UNK
     Route: 048
     Dates: start: 20090617
  16. ACTOS [Suspect]
     Active Substance: PIOGLITAZONE HYDROCHLORIDE
     Dosage: 30 MG/ 30 DAYS, UNK
     Dates: start: 20091029

REACTIONS (1)
  - Bladder cancer [Unknown]

NARRATIVE: CASE EVENT DATE: 20090401
